FAERS Safety Report 8519038-8 (Version None)
Quarter: 2012Q3

REPORT INFORMATION
  Report Type: 
  Country: None (occurrence: None)
  Receive Date: 20120718
  Receipt Date: 20120713
  Transmission Date: 20120928
  Serious: Yes (Death, Life-Threatening, Other)
  Sender: FDA-Public Use
  Company Number: PHHY2012JP031716

PATIENT
  Sex: Male

DRUGS (9)
  1. RITUXIMAB [Suspect]
     Dosage: UNK UKN, UNK
  2. PREDNISOLONE [Suspect]
     Dosage: 10 MG, DAILY
     Route: 048
     Dates: end: 20110318
  3. NEORAL [Suspect]
     Indication: RENAL TRANSPLANT
     Dosage: 50 MG, DAILY
     Route: 048
     Dates: end: 20110315
  4. BREDININ [Suspect]
     Dosage: 100 MG, DAILY
     Route: 048
     Dates: end: 20110308
  5. MYCOPHENOLATE MOFETIL [Suspect]
     Indication: RENAL TRANSPLANT
  6. PROGRAF [Suspect]
     Dosage: 2 MG, DAILY
     Route: 048
     Dates: end: 20111117
  7. NEORAL [Suspect]
     Dosage: 100 MG, DAILY
     Route: 048
     Dates: start: 20101118, end: 20110315
  8. PREDNISOLONE [Suspect]
     Dosage: 10 MG, UNK
     Route: 042
     Dates: end: 20110322
  9. INSULIN [Concomitant]
     Dosage: UNK UKN, UNK

REACTIONS (42)
  - ULCER [None]
  - LARGE INTESTINAL ULCER [None]
  - ANAL HAEMORRHAGE [None]
  - DIARRHOEA [None]
  - RESPIRATORY FAILURE [None]
  - ACUTE RESPIRATORY DISTRESS SYNDROME [None]
  - COAGULOPATHY [None]
  - ANAEMIA [None]
  - ACUTE RESPIRATORY FAILURE [None]
  - SEPSIS [None]
  - INTERSTITIAL LUNG DISEASE [None]
  - APNOEA [None]
  - METABOLIC ACIDOSIS [None]
  - PNEUMOCYSTIS JIROVECI PNEUMONIA [None]
  - ORAL ADMINISTRATION COMPLICATION [None]
  - DUODENAL ULCER [None]
  - PNEUMONIA CYTOMEGALOVIRAL [None]
  - GASTROINTESTINAL HAEMORRHAGE [None]
  - SMALL INTESTINAL HAEMORRHAGE [None]
  - GASTROINTESTINAL ULCER HAEMORRHAGE [None]
  - CIRCULATORY COLLAPSE [None]
  - SEPTIC SHOCK [None]
  - HYPERTENSION [None]
  - RESTLESSNESS [None]
  - ILEAL FISTULA [None]
  - PURULENCE [None]
  - HYPOVENTILATION [None]
  - HYPERGLYCAEMIA [None]
  - DISSEMINATED INTRAVASCULAR COAGULATION [None]
  - CYTOMEGALOVIRUS ENTEROCOLITIS [None]
  - ANAL FISTULA [None]
  - SHOCK HAEMORRHAGIC [None]
  - MELAENA [None]
  - DYSPNOEA [None]
  - SYSTEMIC INFLAMMATORY RESPONSE SYNDROME [None]
  - ILEAL ULCER [None]
  - COLONIC FISTULA [None]
  - CARDIAC FAILURE ACUTE [None]
  - DELIRIUM [None]
  - ENTEROCOCCAL INFECTION [None]
  - FUNGAL INFECTION [None]
  - INSOMNIA [None]
